FAERS Safety Report 23123676 (Version 1)
Quarter: 2023Q4

REPORT INFORMATION
  Report Type: Spontaneous
  Country: US (occurrence: None)
  Receive Date: 20231030
  Receipt Date: 20231030
  Transmission Date: 20240110
  Serious: Yes (Other)
  Sender: FDA-Public Use
  Company Number: US-ROCHE-3443541

PATIENT

DRUGS (2)
  1. OCREVUS [Suspect]
     Active Substance: OCRELIZUMAB
     Indication: Product used for unknown indication
     Route: 065
  2. LEMTRADA [Concomitant]
     Active Substance: ALEMTUZUMAB

REACTIONS (7)
  - CD4 lymphocytes decreased [Unknown]
  - B-lymphocyte count decreased [Unknown]
  - COVID-19 [Unknown]
  - Urinary tract infection [Unknown]
  - Sinusitis [Unknown]
  - Condition aggravated [Unknown]
  - Gait inability [Unknown]
